FAERS Safety Report 6078689-3 (Version None)
Quarter: 2009Q1

REPORT INFORMATION
  Report Type: 
  Country: None (occurrence: None)
  Receive Date: 20090216
  Receipt Date: 20090206
  Transmission Date: 20090719
  Serious: Yes (Other)
  Sender: FDA-Public Use
  Company Number: US-SP-2008-01836

PATIENT
  Age: 28 Year
  Sex: Female

DRUGS (6)
  1. ADACEL [Suspect]
     Indication: IMMUNISATION
     Route: 030
     Dates: start: 20080606
  2. TUBERSOL [Suspect]
     Indication: TUBERCULIN TEST
     Route: 023
     Dates: start: 20080602
  3. TUBERSOL [Suspect]
     Route: 023
     Dates: start: 20080602
  4. ADVAIR DISKUS 100/50 [Concomitant]
     Indication: ASTHMA
  5. ZANTAC [Concomitant]
     Indication: GASTROOESOPHAGEAL REFLUX DISEASE
  6. PRENATAL VITAMINIS [Concomitant]
     Indication: PREGNANCY
     Dosage: 1 PO, QD
     Dates: start: 20080624, end: 20090117

REACTIONS (6)
  - ASTHMA [None]
  - BODY MASS INDEX INCREASED [None]
  - GESTATIONAL DIABETES [None]
  - INJECTION SITE REACTION [None]
  - INJECTION SITE SWELLING [None]
  - URINARY TRACT INFECTION [None]
